FAERS Safety Report 21891777 (Version 1)
Quarter: 2023Q1

REPORT INFORMATION
  Report Type: Spontaneous
  Country: JP (occurrence: JP)
  Receive Date: 20230120
  Receipt Date: 20230120
  Transmission Date: 20230417
  Serious: Yes (Other)
  Sender: FDA-Public Use
  Company Number: JP-GLAXOSMITHKLINE-JP2023JPN006521

PATIENT

DRUGS (1)
  1. LAMICTAL [Suspect]
     Active Substance: LAMOTRIGINE
     Dosage: UNK

REACTIONS (4)
  - Lupus-like syndrome [Recovering/Resolving]
  - Polyarthritis [Unknown]
  - Systemic lupus erythematosus rash [Recovering/Resolving]
  - Pyrexia [Recovering/Resolving]
